FAERS Safety Report 4788569-9 (Version None)
Quarter: 2005Q4

REPORT INFORMATION
  Report Type: 
  Country: None (occurrence: None)
  Receive Date: 20051005
  Receipt Date: 20050804
  Transmission Date: 20060501
  Serious: Yes (Hospitalization, Other)
  Sender: FDA-Public Use
  Company Number: ES-GILEAD-2005-0008590

PATIENT
  Sex: Male
  Weight: 60 kg

DRUGS (7)
  1. VIREAD [Suspect]
     Indication: HIV INFECTION
     Route: 048
     Dates: start: 20030301, end: 20050801
  2. ATAZANAVIR [Concomitant]
     Indication: HIV INFECTION
     Route: 048
     Dates: start: 20050201, end: 20050801
  3. NEVIRAPINE [Concomitant]
     Indication: HIV INFECTION
     Route: 048
     Dates: start: 20041201, end: 20050801
  4. RITONAVIR [Concomitant]
     Indication: HIV INFECTION
     Route: 048
     Dates: start: 20050201, end: 20050801
  5. HYDROCHLOROTHIAZIDE [Concomitant]
     Indication: HYPERTENSION
     Route: 048
     Dates: start: 20050601, end: 20050801
  6. INSULIN [Concomitant]
  7. IRBESARTAN [Concomitant]
     Indication: HYPERTENSION
     Route: 048
     Dates: start: 20050601, end: 20050801

REACTIONS (5)
  - BLOOD CREATININE INCREASED [None]
  - FANCONI SYNDROME [None]
  - NEPHROLITHIASIS [None]
  - PROTEINURIA [None]
  - RENAL TUBULAR DISORDER [None]
